FAERS Safety Report 19438938 (Version 1)
Quarter: 2021Q2

REPORT INFORMATION
  Report Type: Spontaneous
  Country: US (occurrence: US)
  Receive Date: 20210619
  Receipt Date: 20210619
  Transmission Date: 20210717
  Serious: Yes (Hospitalization)
  Sender: FDA-Public Use
  Company Number: US-PERRIGO-21US007679

PATIENT
  Age: 1 Day
  Sex: Male

DRUGS (1)
  1. ACETAMINOPHEN. [Suspect]
     Active Substance: ACETAMINOPHEN
     Indication: FOETAL EXPOSURE DURING PREGNANCY
     Dosage: 1000 MG, 1 TO 2 TIMES DAILY
     Route: 064

REACTIONS (4)
  - Respiratory failure [Recovered/Resolved]
  - Foetal exposure during pregnancy [Recovered/Resolved]
  - Pulmonary hypertension [Recovered/Resolved]
  - Ductus arteriosus premature closure [Unknown]
